FAERS Safety Report 9462573 (Version 1)
Quarter: 2013Q3

REPORT INFORMATION
  Report Type: Other
  Country: GB (occurrence: GB)
  Receive Date: 20130816
  Receipt Date: 20130816
  Transmission Date: 20140515
  Serious: Yes (Other)
  Sender: FDA-Public Use
  Company Number: GB-BRISTOL-MYERS SQUIBB COMPANY-19175199

PATIENT
  Age: 39 Year
  Sex: Female

DRUGS (3)
  1. TRIAMCINOLONE ACE INJ 40 MG [Suspect]
  2. RITONAVIR [Interacting]
     Indication: HIV INFECTION
  3. HYDROCORTISONE [Concomitant]

REACTIONS (3)
  - Cushing^s syndrome [Unknown]
  - Drug interaction [Unknown]
  - Medication error [Unknown]
